FAERS Safety Report 18393684 (Version 2)
Quarter: 2020Q4

REPORT INFORMATION
  Report Type: Spontaneous
  Country: IT (occurrence: IT)
  Receive Date: 20201016
  Receipt Date: 20201026
  Transmission Date: 20210114
  Serious: Yes (Other)
  Sender: FDA-Public Use
  Company Number: IT-PFIZER INC-2020399705

PATIENT
  Sex: Female

DRUGS (4)
  1. COTAREG [Suspect]
     Active Substance: HYDROCHLOROTHIAZIDE\VALSARTAN
     Indication: HYPERTENSION
     Dosage: 1 DF (160/12.5 MG)
     Route: 048
  2. CORTISONE [Interacting]
     Active Substance: CORTISONE
     Indication: HYPERTENSION
     Dosage: UNK
  3. DICLOREUM [Concomitant]
     Active Substance: DICLOFENAC SODIUM
     Dosage: UNK
  4. TORVAST [Suspect]
     Active Substance: ATORVASTATIN
     Dosage: UNK

REACTIONS (3)
  - Dermatitis bullous [Recovering/Resolving]
  - Drug interaction [Recovering/Resolving]
  - Body temperature decreased [Unknown]
